FAERS Safety Report 5272526-2 (Version None)
Quarter: 2007Q1

REPORT INFORMATION
  Report Type: 
  Country: None (occurrence: None)
  Receive Date: 20070322
  Receipt Date: 20061003
  Transmission Date: 20070707
  Serious: Yes (Hospitalization)
  Sender: FDA-Public Use
  Company Number: US-BRISTOL-MYERS SQUIBB COMPANY-13529201

PATIENT

DRUGS (1)
  1. KENALOG-10 [Suspect]

REACTIONS (1)
  - CELLULITIS [None]
